FAERS Safety Report 20118711 (Version 3)
Quarter: 2022Q2

REPORT INFORMATION
  Report Type: Spontaneous
  Country: JP (occurrence: JP)
  Receive Date: 20211126
  Receipt Date: 20220406
  Transmission Date: 20220720
  Serious: Yes (Hospitalization)
  Sender: FDA-Public Use
  Company Number: JP-Eisai-202108704_LEN-TMC_P_1

PATIENT
  Age: 78 Year
  Sex: Female
  Weight: 56 kg

DRUGS (3)
  1. LENVIMA [Suspect]
     Active Substance: LENVATINIB
     Indication: Malignant neoplasm of thymus
     Dosage: AS NEEDED
     Route: 048
     Dates: start: 20210331, end: 20210505
  2. LENVIMA [Suspect]
     Active Substance: LENVATINIB
     Dosage: AS NEEDED
     Route: 048
     Dates: start: 20210506, end: 20210909
  3. LENVIMA [Suspect]
     Active Substance: LENVATINIB
     Dosage: 2 WEEKS ON AND 2 WEEKS OFF
     Route: 048
     Dates: start: 20210910

REACTIONS (3)
  - Oedema [Recovering/Resolving]
  - Decreased appetite [Recovered/Resolved]
  - Diarrhoea [Recovered/Resolved]

NARRATIVE: CASE EVENT DATE: 20210506
